FAERS Safety Report 21915022 (Version 1)
Quarter: 2023Q1

REPORT INFORMATION
  Report Type: Spontaneous
  Country: US (occurrence: US)
  Receive Date: 20230126
  Receipt Date: 20230126
  Transmission Date: 20230418
  Serious: No
  Sender: FDA-Public Use
  Company Number: US-CATALYST PHARMACEUTICALS, INC-2022CAT00662

PATIENT
  Sex: Female
  Weight: 93.424 kg

DRUGS (16)
  1. FIRDAPSE [Suspect]
     Active Substance: AMIFAMPRIDINE PHOSPHATE
     Indication: Myasthenic syndrome
     Dosage: 15 MG, 2X/DAY (EARLY MORNING AND 11:00AM)
     Route: 048
     Dates: start: 20190322
  2. FIRDAPSE [Suspect]
     Active Substance: AMIFAMPRIDINE PHOSPHATE
     Dosage: 10 MG, 3X/DAY (9:00 AM, 3:00 PM, 5:30 PM)
     Route: 048
     Dates: start: 20190321
  3. ASPIRIN [Concomitant]
     Active Substance: ASPIRIN
     Dosage: 162 MG, 1X/DAY
  4. DULOXETINE [Concomitant]
     Active Substance: DULOXETINE
     Dosage: 60 MG, 2X/DAY
  5. FERROUS SULFATE [Concomitant]
     Active Substance: FERROUS SULFATE
     Dosage: 400 MG, EVERY 48 HOURS (EVERY OTHER DAY)
  6. LOSARTAN [Concomitant]
     Active Substance: LOSARTAN
     Dosage: 50 MG, 2X/DAY
  7. MEPERIDINE [Concomitant]
     Active Substance: MEPERIDINE
     Dosage: UNK UNK, AS NEEDED
  8. OXYBUTYNIN [Concomitant]
     Active Substance: OXYBUTYNIN
     Dosage: 5 MG, 4X/DAY
  9. POTASSIUM CHLORIDE [Concomitant]
     Active Substance: POTASSIUM CHLORIDE
     Dosage: 20 MEQ, TWICE
  10. PROLIA [Concomitant]
     Active Substance: DENOSUMAB
     Dosage: UNK, 2X/YEAR (EVERY 6 MONTHS)
  11. PYRIDOSTIGMINE BROMIDE [Concomitant]
     Active Substance: PYRIDOSTIGMINE BROMIDE
     Dosage: 60 MG, 4X/DAY
  12. RITUXAN [Concomitant]
     Active Substance: RITUXIMAB
     Dosage: 500 MG, 4X/YEAR (EVERY 3 MONTHS)
  13. TEGRETOL [Concomitant]
     Active Substance: CARBAMAZEPINE
     Dosage: 200 MG, AS NEEDED
  14. TIMOLOL [Concomitant]
     Active Substance: TIMOLOL
     Dosage: 1 DROP, 1X/DAY
     Route: 047
  15. VIACTIV (CALCIUM, VITAMIN D, VITAMIN K) [Concomitant]
     Dosage: 1 DOSAGE UNITS, 3X/DAY
  16. XALATAN [Concomitant]
     Active Substance: LATANOPROST
     Dosage: 1 DROP, 1X/DAY
     Route: 047

REACTIONS (6)
  - COVID-19 [Recovered/Resolved]
  - Fatigue [Recovered/Resolved]
  - Stress [Recovered/Resolved]
  - Cough [Recovered/Resolved]
  - Unevaluable event [Recovered/Resolved]
  - Product dose omission issue [Recovered/Resolved]

NARRATIVE: CASE EVENT DATE: 20220101
